FAERS Safety Report 5093739-9 (Version None)
Quarter: 2006Q3

REPORT INFORMATION
  Report Type: 
  Country: None (occurrence: None)
  Receive Date: 20060728
  Receipt Date: 20060411
  Transmission Date: 20061208
  Serious: No
  Sender: FDA-Public Use
  Company Number: 252667

PATIENT
  Age: 51 Year
  Sex: Female
  Weight: 65.3 kg

DRUGS (3)
  1. LEVEMIR [Suspect]
     Indication: DIABETES MELLITUS INSULIN-DEPENDENT
     Dosage: 22 IU, QD, SUBCUTANEOUS
     Route: 058
     Dates: start: 20060401
  2. SYNTHROID                   (LEVOTHYROXINE SODIUM) POWDER AND SOLVENT [Concomitant]
  3. LORATADINE [Concomitant]

REACTIONS (1)
  - BLOOD GLUCOSE INCREASED [None]
